FAERS Safety Report 21501174 (Version 7)
Quarter: 2023Q2

REPORT INFORMATION
  Report Type: Report from Study
  Country: US (occurrence: US)
  Receive Date: 20221025
  Receipt Date: 20230607
  Transmission Date: 20230721
  Serious: No
  Sender: FDA-Public Use
  Company Number: US-NOVARTISTESTPH-NVSC2022US239135

PATIENT
  Age: 62 Year
  Sex: Female

DRUGS (1)
  1. COSENTYX [Suspect]
     Active Substance: SECUKINUMAB
     Indication: Psoriasis
     Dosage: UNK
     Route: 065

REACTIONS (8)
  - Abdominal pain upper [Unknown]
  - Pain [Unknown]
  - Urinary tract infection [Unknown]
  - COVID-19 [Unknown]
  - Diarrhoea [Unknown]
  - Infection [Unknown]
  - Rebound psoriasis [Unknown]
  - Pruritus [Unknown]
